FAERS Safety Report 6064064-4 (Version None)
Quarter: 2009Q1

REPORT INFORMATION
  Report Type: 
  Country: None (occurrence: None)
  Receive Date: 20090130
  Receipt Date: 20090124
  Transmission Date: 20090719
  Serious: Yes (Other)
  Sender: FDA-Public Use
  Company Number: 2009SP001860

PATIENT
  Sex: Female

DRUGS (2)
  1. MIRALAX [Suspect]
     Indication: CONSTIPATION
     Dosage: 17 GM;PO
     Route: 048
     Dates: start: 20090101
  2. MIRALAX [Suspect]
     Indication: CONSTIPATION
     Dosage: 17 GM;PO
     Route: 048
     Dates: start: 20090123

REACTIONS (2)
  - FAECES DISCOLOURED [None]
  - HAEMATOCHEZIA [None]
